FAERS Safety Report 7341375 (Version 4)
Quarter: 2014Q4

REPORT INFORMATION
  Report Type: Spontaneous
  Country: JP (occurrence: JP)
  Receive Date: 20100401
  Receipt Date: 20141118
  Transmission Date: 20150529
  Serious: Yes (Hospitalization, Other)
  Sender: FDA-Public Use
  Company Number: PHHY2009JP36354

PATIENT
  Age: 69 Year
  Sex: Male

DRUGS (7)
  1. GLIVEC [Suspect]
     Active Substance: IMATINIB MESYLATE
     Dosage: 300 MG, DAILY
     Route: 048
     Dates: start: 20081125, end: 20090105
  2. TASIGNA [Suspect]
     Active Substance: NILOTINIB
     Dosage: 600 MG, PER DAY
     Route: 048
  3. TASIGNA [Suspect]
     Active Substance: NILOTINIB
     Dosage: 400 MG, PER DAY
     Route: 048
  4. TASIGNA [Suspect]
     Active Substance: NILOTINIB
     Dosage: 800 MG, PER DAY
     Route: 048
  5. GLIVEC [Suspect]
     Active Substance: IMATINIB MESYLATE
     Indication: CHRONIC MYELOID LEUKAEMIA
     Dosage: 400 MG, DAILY
     Route: 048
     Dates: start: 20060823, end: 20081103
  6. GLIVEC [Suspect]
     Active Substance: IMATINIB MESYLATE
     Dosage: 200 MG, DAILY
     Route: 048
     Dates: start: 20090127, end: 20090302
  7. TASIGNA [Suspect]
     Active Substance: NILOTINIB
     Indication: CHRONIC MYELOID LEUKAEMIA
     Dosage: 800 MG, PER DAY
     Route: 048
     Dates: start: 200903

REACTIONS (9)
  - Gastrointestinal haemorrhage [Recovered/Resolved]
  - Squamous cell carcinoma of skin [Recovered/Resolved]
  - Neoplasm recurrence [Recovered/Resolved]
  - Thrombocytopenia [Recovered/Resolved]
  - Anaemia [Recovered/Resolved]
  - Therapeutic response unexpected [Unknown]
  - Malignant neoplasm progression [Recovered/Resolved]
  - Haemoglobin decreased [Unknown]
  - Second primary malignancy [Recovered/Resolved]

NARRATIVE: CASE EVENT DATE: 20060915
